FAERS Safety Report 7053648-2 (Version None)
Quarter: 2010Q4

REPORT INFORMATION
  Report Type: 
  Country: None (occurrence: None)
  Receive Date: 20101020
  Receipt Date: 20101008
  Transmission Date: 20110411
  Serious: Yes (Hospitalization, Other)
  Sender: FDA-Public Use
  Company Number: US-AMGEN LTD.-QUU437009

PATIENT

DRUGS (23)
  1. NPLATE [Suspect]
     Indication: IDIOPATHIC THROMBOCYTOPENIC PURPURA
     Dosage: 80 A?G, UNK
     Dates: start: 20090730
  2. CORTICOSTEROID NOS [Concomitant]
  3. DOCUSATE SODIUM [Concomitant]
     Dosage: 100 MG, QD
  4. FERROUS GLUCONATE [Concomitant]
     Dosage: 324 MG, QOD
  5. ASCORBIC ACID [Concomitant]
     Dosage: 500 MG, QD
  6. SODIUM CHLORIDE [Concomitant]
  7. GABAPEN [Concomitant]
     Dosage: 1200 MG, UNK
  8. SIMVASTATIN [Concomitant]
     Dosage: 20 MG, QD
  9. OMEPRAZOLE [Concomitant]
     Dosage: 20 MG, QD
  10. SERTRALINE HYDROCHLORIDE [Concomitant]
     Dosage: 50 MG, QD
  11. FLUCONAZOLE [Concomitant]
     Dosage: 100 MG, QD
  12. FUROSEMIDE [Concomitant]
     Dosage: 80 MG, QD
  13. COENZYME Q10 [Concomitant]
     Dosage: 30 MG, QD
  14. MIRALAX [Concomitant]
     Dosage: 17 G, QD
  15. NEPHRO-VITE [Concomitant]
     Dosage: UNK UNK, UNK
  16. CYANOCOBALAMIN [Concomitant]
     Dosage: 1000 A?G, QD
  17. WOOL FAT [Concomitant]
  18. GUAIFENESIN [Concomitant]
     Dosage: 600 MG, QOD
  19. ACETAMINOPHEN AND HYDROCODONE BITARTRATE [Concomitant]
  20. IPRATROPIUM BROMIDE AND ALBUTEROL SULFATE [Concomitant]
  21. SENNA [Concomitant]
     Dosage: UNK UNK, UNK
  22. PREDNISONE [Concomitant]
     Dosage: 5 MG, QD
  23. CLINDAMYCIN [Concomitant]

REACTIONS (7)
  - CELLULITIS [None]
  - DIARRHOEA [None]
  - EYE INFECTION FUNGAL [None]
  - HYPERLIPIDAEMIA [None]
  - HYPOKALAEMIA [None]
  - NEUROPATHY PERIPHERAL [None]
  - THROMBOCYTOPENIA [None]
